FAERS Safety Report 20027185 (Version 1)
Quarter: 2021Q4

REPORT INFORMATION
  Report Type: Spontaneous
  Country: CA (occurrence: CA)
  Receive Date: 20211103
  Receipt Date: 20211103
  Transmission Date: 20220303
  Serious: Yes (Hospitalization, Other)
  Sender: FDA-Public Use
  Company Number: CA-009507513-2009CAN008119

PATIENT
  Age: 50 Year
  Sex: Female

DRUGS (46)
  1. SINGULAIR [Suspect]
     Active Substance: MONTELUKAST SODIUM
     Indication: Complex regional pain syndrome
     Dosage: DOSAGE FORM: NOT SPECIFIED
     Route: 065
  2. AMITRIPTYLINE HYDROCHLORIDE [Suspect]
     Active Substance: AMITRIPTYLINE HYDROCHLORIDE
     Indication: Complex regional pain syndrome
     Dosage: UNK
     Route: 065
  3. AMLODIPINE BESYLATE [Suspect]
     Active Substance: AMLODIPINE BESYLATE
     Indication: Complex regional pain syndrome
     Dosage: UNK
     Route: 065
  4. ANAKINRA [Suspect]
     Active Substance: ANAKINRA
     Indication: Complex regional pain syndrome
     Dosage: UNK
     Route: 065
  5. APREMILAST [Suspect]
     Active Substance: APREMILAST
     Indication: Complex regional pain syndrome
     Dosage: UNK
     Route: 065
  6. BUMETANIDE [Suspect]
     Active Substance: BUMETANIDE
     Indication: Complex regional pain syndrome
     Dosage: UNK
     Route: 065
  7. CAPSAICIN [Suspect]
     Active Substance: CAPSAICIN
     Indication: Complex regional pain syndrome
     Dosage: UNK
     Route: 061
  8. CIMETIDINE [Suspect]
     Active Substance: CIMETIDINE
     Indication: Complex regional pain syndrome
     Dosage: DOSAGE FORM NOT SPECIFIED
     Route: 065
  9. CLONIDINE [Suspect]
     Active Substance: CLONIDINE
     Indication: Complex regional pain syndrome
     Dosage: DOSAGE FORM NOT SPECIFIED
     Route: 065
  10. DILTIAZEM [Suspect]
     Active Substance: DILTIAZEM
     Indication: Complex regional pain syndrome
     Dosage: DOSAGE FORM NOT SPECIFIED
     Route: 065
  11. ERELZI [Suspect]
     Active Substance: ETANERCEPT-SZZS
     Indication: Complex regional pain syndrome
     Dosage: UNK
     Route: 065
  12. HYDROXYCHLOROQUINE SULFATE [Suspect]
     Active Substance: HYDROXYCHLOROQUINE SULFATE
     Indication: Complex regional pain syndrome
     Dosage: UNK
     Route: 065
  13. IBUDILAST [Suspect]
     Active Substance: IBUDILAST
     Indication: Complex regional pain syndrome
     Dosage: UNK
     Route: 065
  14. KETAMINE [Suspect]
     Active Substance: KETAMINE
     Indication: Complex regional pain syndrome
     Dosage: UNK
     Route: 061
  15. KETAMINE [Suspect]
     Active Substance: KETAMINE
     Dosage: UNK
     Route: 048
  16. KETAMINE [Suspect]
     Active Substance: KETAMINE
     Dosage: UNK
     Route: 042
  17. LIDOCAINE [Suspect]
     Active Substance: LIDOCAINE
     Indication: Complex regional pain syndrome
     Dosage: UNK
     Route: 061
  18. LIDOCAINE [Suspect]
     Active Substance: LIDOCAINE
     Dosage: UNK
     Route: 042
  19. LITHIUM CARBONATE [Suspect]
     Active Substance: LITHIUM CARBONATE
     Indication: Complex regional pain syndrome
     Dosage: DOSAGE FORM NOT SPECIFIED
     Route: 065
  20. MAGNESIUM [Suspect]
     Active Substance: MAGNESIUM
     Indication: Migraine prophylaxis
     Dosage: UNK
     Route: 065
  21. MAGNESIUM [Suspect]
     Active Substance: MAGNESIUM
     Indication: Complex regional pain syndrome
  22. MEMANTINE [Suspect]
     Active Substance: MEMANTINE
     Indication: Complex regional pain syndrome
     Dosage: UNK
     Route: 065
  23. METOPROLOL [Suspect]
     Active Substance: METOPROLOL
     Indication: Complex regional pain syndrome
     Dosage: UNK
     Route: 065
  24. MEXILETINE [Suspect]
     Active Substance: MEXILETINE
     Indication: Complex regional pain syndrome
     Dosage: UNK
     Route: 065
  25. MYCOPHENOLATE MOFETIL [Suspect]
     Active Substance: MYCOPHENOLATE MOFETIL
     Indication: Complex regional pain syndrome
     Dosage: UNK
     Route: 065
  26. ACETYLCYSTEINE [Suspect]
     Active Substance: ACETYLCYSTEINE
     Indication: Complex regional pain syndrome
     Dosage: UNK
     Route: 065
  27. NALTREXONE HYDROCHLORIDE [Suspect]
     Active Substance: NALTREXONE HYDROCHLORIDE
     Indication: Complex regional pain syndrome
     Dosage: 4.5 MILLIGRAM, 1 EVERY 1 DAYS
     Route: 065
  28. PALMIDROL [Suspect]
     Active Substance: PALMIDROL
     Indication: Complex regional pain syndrome
     Dosage: UNK
     Route: 065
  29. PENTOXIFYLLINE [Suspect]
     Active Substance: PENTOXIFYLLINE
     Indication: Complex regional pain syndrome
     Dosage: UNK
     Route: 065
  30. PREDNISONE [Suspect]
     Active Substance: PREDNISONE
     Indication: Complex regional pain syndrome
     Dosage: 85.0 MILLIGRAM, 1 EVERY 1 DAYS
     Route: 065
  31. PREDNISONE [Suspect]
     Active Substance: PREDNISONE
     Dosage: 95.0 MILLIGRAM, 1 EVERY 1 DAYS
     Route: 065
  32. PREDNISONE [Suspect]
     Active Substance: PREDNISONE
     Dosage: 5.0 MILLIGRAM, 1 EVERY 1 DAYS
     Route: 065
  33. PREDNISONE [Suspect]
     Active Substance: PREDNISONE
     Dosage: 1 EVERY 24 HOURS
     Route: 065
  34. PREDNISONE [Suspect]
     Active Substance: PREDNISONE
     Dosage: 1 EVERY 24 HOURS
     Route: 065
  35. PREDNISONE [Suspect]
     Active Substance: PREDNISONE
     Dosage: 13.0 MILLIGRAM, 1 EVERY 1 DAYS
     Route: 065
  36. SPIRONOLACTONE [Suspect]
     Active Substance: SPIRONOLACTONE
     Indication: Complex regional pain syndrome
     Dosage: UNK
     Route: 065
  37. RIBOFLAVIN [Suspect]
     Active Substance: RIBOFLAVIN
     Indication: Migraine prophylaxis
     Dosage: UNK, VITAMIN B2
     Route: 065
  38. RIBOFLAVIN [Suspect]
     Active Substance: RIBOFLAVIN
     Indication: Complex regional pain syndrome
     Dosage: UNK, VITAMIN B2
  39. ASCORBIC ACID [Suspect]
     Active Substance: ASCORBIC ACID
     Indication: Complex regional pain syndrome
     Dosage: UNK, VITAMIN C
     Route: 065
  40. CALCITONIN [Concomitant]
     Active Substance: CALCITONIN
     Indication: Complex regional pain syndrome
     Dosage: DOSAGE FORM NOT SPECIFIED
     Route: 065
  41. EZETIMIBE [Concomitant]
     Active Substance: EZETIMIBE
     Indication: Hyperlipidaemia
     Dosage: UNK
     Route: 065
  42. TRAZODONE HYDROCHLORIDE [Concomitant]
     Active Substance: TRAZODONE HYDROCHLORIDE
     Indication: Insomnia
     Dosage: UNK
     Route: 065
  43. MAGNESIUM GLUCONATE [Suspect]
     Active Substance: MAGNESIUM GLUCONATE
     Indication: Migraine prophylaxis
     Dosage: UNK
     Route: 065
  44. MAGNESIUM GLUCONATE [Suspect]
     Active Substance: MAGNESIUM GLUCONATE
     Indication: Complex regional pain syndrome
     Dosage: UNK
     Route: 065
  45. PREGABALIN [Suspect]
     Active Substance: PREGABALIN
     Indication: Complex regional pain syndrome
     Dosage: UNK
     Route: 065
  46. MEMANTINE HYDROCHLORIDE [Suspect]
     Active Substance: MEMANTINE HYDROCHLORIDE
     Indication: Complex regional pain syndrome
     Dosage: UNK
     Route: 065

REACTIONS (21)
  - Body tinea [Recovered/Resolved]
  - Bone density decreased [Recovered/Resolved]
  - Cataract [Recovered/Resolved]
  - Cellulitis [Recovered/Resolved]
  - Drug ineffective [Recovered/Resolved]
  - Glucose tolerance impaired [Recovered/Resolved]
  - Herpes zoster [Recovered/Resolved]
  - Hyperlipidaemia [Recovered/Resolved]
  - Hypertension [Recovered/Resolved]
  - Impaired quality of life [Recovered/Resolved]
  - Impaired work ability [Recovered/Resolved]
  - Infection susceptibility increased [Recovered/Resolved]
  - Inhibitory drug interaction [Recovered/Resolved]
  - Oral herpes [Recovered/Resolved]
  - Purpura [Recovered/Resolved]
  - Skin disorder [Recovered/Resolved]
  - Weight increased [Recovered/Resolved]
  - Contusion [Recovered/Resolved]
  - Fatigue [Recovered/Resolved]
  - Insomnia [Recovered/Resolved]
  - Poor quality sleep [Recovered/Resolved]
